FAERS Safety Report 20470254 (Version 2)
Quarter: 2022Q1

REPORT INFORMATION
  Report Type: Report from Study
  Country: US (occurrence: US)
  Receive Date: 20220214
  Receipt Date: 20220214
  Transmission Date: 20220423
  Serious: Yes (Hospitalization)
  Sender: FDA-Public Use
  Company Number: US-CELGENE-USA-20220202828

PATIENT
  Age: 78 Year
  Sex: Female
  Weight: 37.954 kg

DRUGS (31)
  1. POMALIDOMIDE [Suspect]
     Active Substance: POMALIDOMIDE
     Indication: Plasma cell myeloma
     Dosage: 3 MILLIGRAM
     Route: 048
     Dates: start: 20200728, end: 20200808
  2. POMALIDOMIDE [Suspect]
     Active Substance: POMALIDOMIDE
     Dosage: 3 MILLIGRAM
     Route: 048
     Dates: start: 20200820, end: 20210309
  3. POMALIDOMIDE [Suspect]
     Active Substance: POMALIDOMIDE
     Dosage: 3 MILLIGRAM
     Route: 048
     Dates: start: 20210406, end: 20210821
  4. POMALIDOMIDE [Suspect]
     Active Substance: POMALIDOMIDE
     Dosage: 3 MILLIGRAM
     Route: 048
     Dates: start: 20210728, end: 20210821
  5. POMALIDOMIDE [Suspect]
     Active Substance: POMALIDOMIDE
     Dosage: 3 MILLIGRAM
     Route: 048
     Dates: start: 20220201
  6. REVLIMID [Suspect]
     Active Substance: LENALIDOMIDE
     Indication: Plasma cell myeloma
     Dosage: 18.75 MILLIGRAM
     Route: 048
     Dates: start: 20160301, end: 20170425
  7. REVLIMID [Suspect]
     Active Substance: LENALIDOMIDE
     Dosage: 18.75 MILLIGRAM
     Route: 048
     Dates: start: 20190419, end: 20190702
  8. REVLIMID [Suspect]
     Active Substance: LENALIDOMIDE
     Dosage: 18.75 MILLIGRAM
     Route: 048
     Dates: start: 20190903, end: 20191015
  9. REVLIMID [Suspect]
     Active Substance: LENALIDOMIDE
     Dosage: 18.75 MILLIGRAM
     Route: 048
     Dates: start: 20191015, end: 20191217
  10. REVLIMID [Suspect]
     Active Substance: LENALIDOMIDE
     Dosage: 18.75 MILLIGRAM
     Route: 048
     Dates: start: 20200114, end: 20200211
  11. DEXAMETHASONE [Suspect]
     Active Substance: DEXAMETHASONE
     Indication: Plasma cell myeloma
     Dosage: 2.8571 MILLIGRAM
     Route: 048
     Dates: start: 20210728, end: 20210818
  12. DEXAMETHASONE [Suspect]
     Active Substance: DEXAMETHASONE
     Dosage: 5.7143 MILLIGRAM
     Route: 048
     Dates: start: 20150729, end: 20150820
  13. DEXAMETHASONE [Suspect]
     Active Substance: DEXAMETHASONE
     Dosage: 2.8571 MILLIGRAM
     Route: 048
     Dates: start: 20160301, end: 20170425
  14. DEXAMETHASONE [Suspect]
     Active Substance: DEXAMETHASONE
     Dosage: 2.8571 MILLIGRAM
     Route: 048
     Dates: start: 20190419, end: 20190702
  15. DEXAMETHASONE [Suspect]
     Active Substance: DEXAMETHASONE
     Dosage: 2.8571 MILLIGRAM
     Route: 048
     Dates: start: 20190903, end: 20191015
  16. DEXAMETHASONE [Suspect]
     Active Substance: DEXAMETHASONE
     Dosage: 2.8571 MILLIGRAM
     Route: 048
     Dates: start: 20191015, end: 20191217
  17. DEXAMETHASONE [Suspect]
     Active Substance: DEXAMETHASONE
     Dosage: 2.8571 MILLIGRAM
     Route: 048
     Dates: start: 20200114, end: 20200211
  18. DEXAMETHASONE [Suspect]
     Active Substance: DEXAMETHASONE
     Dosage: 2.8571 MILLIGRAM
     Route: 048
     Dates: start: 20200728, end: 20200808
  19. DEXAMETHASONE [Suspect]
     Active Substance: DEXAMETHASONE
     Dosage: 2.8571 MILLIGRAM
     Route: 048
     Dates: start: 20200820, end: 20210309
  20. DEXAMETHASONE [Suspect]
     Active Substance: DEXAMETHASONE
     Dosage: 2.8571 MILLIGRAM
     Route: 048
     Dates: start: 20210406, end: 20210818
  21. VELCADE [Suspect]
     Active Substance: BORTEZOMIB
     Indication: Plasma cell myeloma
     Dosage: .3286 MILLIGRAM
     Route: 058
     Dates: start: 20200728, end: 20210818
  22. VELCADE [Suspect]
     Active Substance: BORTEZOMIB
     Dosage: .2143 MILLIGRAM/SQ. METER
     Route: 058
     Dates: start: 20150806, end: 20151008
  23. VELCADE [Suspect]
     Active Substance: BORTEZOMIB
     Dosage: .1429 MILLIGRAM/SQ. METER
     Route: 058
     Dates: start: 20151015, end: 20151022
  24. VELCADE [Suspect]
     Active Substance: BORTEZOMIB
     Dosage: .1857 MILLIGRAM/SQ. METER
     Route: 058
     Dates: start: 20151015, end: 20151217
  25. VELCADE [Suspect]
     Active Substance: BORTEZOMIB
     Dosage: .1857 MILLIGRAM/SQ. METER
     Route: 058
     Dates: start: 20200121, end: 20200211
  26. VELCADE [Suspect]
     Active Substance: BORTEZOMIB
     Dosage: .1857 MILLIGRAM/SQ. METER
     Route: 058
     Dates: start: 20200128, end: 20200808
  27. VELCADE [Suspect]
     Active Substance: BORTEZOMIB
     Dosage: .1857 MILLIGRAM/SQ. METER
     Route: 058
     Dates: start: 20200825, end: 20210309
  28. VELCADE [Suspect]
     Active Substance: BORTEZOMIB
     Dosage: .1857 MILLIGRAM/SQ. METER
     Route: 058
     Dates: start: 20210406, end: 20210818
  29. CYCLOPHOSPHAMIDE [Concomitant]
     Active Substance: CYCLOPHOSPHAMIDE
     Indication: Product used for unknown indication
     Route: 048
     Dates: start: 20150729, end: 20151022
  30. NINLARO [Concomitant]
     Active Substance: IXAZOMIB CITRATE
     Indication: Product used for unknown indication
     Route: 048
     Dates: start: 20160712, end: 20170425
  31. DARZALEX FASPRO [Concomitant]
     Active Substance: DARATUMUMAB\HYALURONIDASE-FIHJ
     Indication: Product used for unknown indication
     Dosage: 257.1429 MILLIGRAM
     Route: 058
     Dates: start: 20220118

REACTIONS (1)
  - Localised oedema [Recovered/Resolved]

NARRATIVE: CASE EVENT DATE: 20210821
